FAERS Safety Report 20665295 (Version 1)
Quarter: 2022Q2

REPORT INFORMATION
  Report Type: Report from Study
  Country: US (occurrence: US)
  Receive Date: 20220401
  Receipt Date: 20220401
  Transmission Date: 20220720
  Serious: Yes (Hospitalization, Other)
  Sender: FDA-Public Use
  Company Number: US-TAKEDA-2022TUS021775

PATIENT
  Age: 61 Year
  Sex: Female

DRUGS (11)
  1. VEDOLIZUMAB [Suspect]
     Active Substance: VEDOLIZUMAB
     Indication: Crohn^s disease
     Dosage: 300 MILLIGRAM
     Route: 042
     Dates: start: 20181218
  2. METFORMIN [Concomitant]
     Active Substance: METFORMIN HYDROCHLORIDE
     Indication: Type 2 diabetes mellitus
     Dosage: 500 MILLIGRAM
  3. LOSARTAN [Concomitant]
     Active Substance: LOSARTAN
     Indication: Hypertension
     Dosage: 100 MILLIGRAM
  4. DEPAKOTE [Concomitant]
     Active Substance: DIVALPROEX SODIUM
     Indication: Migraine
     Dosage: UNK
  5. FIORICET [Concomitant]
     Active Substance: ACETAMINOPHEN\BUTALBITAL\CAFFEINE
     Dosage: UNK
  6. LEXAPRO [Concomitant]
     Active Substance: ESCITALOPRAM OXALATE
     Indication: Depression
     Dosage: 20 MILLIGRAM
  7. CLONAZEPAM [Concomitant]
     Active Substance: CLONAZEPAM
     Indication: Anxiety
     Dosage: 0.5 MILLIGRAM
  8. TYLENOL                            /00020001/ [Concomitant]
     Indication: Pyrexia
     Dosage: UNK
  9. TYLENOL                            /00020001/ [Concomitant]
     Indication: Pain
  10. FLAGYL                             /00012501/ [Concomitant]
     Indication: Fistula
     Dosage: UNK
  11. AMITRIPTYLINE [Concomitant]
     Active Substance: AMITRIPTYLINE
     Dosage: 100 MILLIGRAM

REACTIONS (17)
  - Small intestinal obstruction [Unknown]
  - Intestinal adenocarcinoma [Unknown]
  - Feeling abnormal [Unknown]
  - Somnolence [Unknown]
  - Diarrhoea [Unknown]
  - Dizziness [Unknown]
  - Tinnitus [Unknown]
  - Fistula [Recovered/Resolved]
  - Decreased appetite [Unknown]
  - Lethargy [Unknown]
  - Weight increased [Unknown]
  - Chills [Unknown]
  - Influenza like illness [Unknown]
  - Asthenia [Unknown]
  - Nausea [Unknown]
  - Pyrexia [Unknown]
  - Fatigue [Not Recovered/Not Resolved]

NARRATIVE: CASE EVENT DATE: 20190219
